FAERS Safety Report 6883270-X (Version None)
Quarter: 2010Q3

REPORT INFORMATION
  Report Type: 
  Country: None (occurrence: None)
  Receive Date: 20100727
  Receipt Date: 20070531
  Transmission Date: 20110219
  Serious: Yes (Hospitalization)
  Sender: FDA-Public Use
  Company Number: US-PFIZER INC-2007044509

PATIENT
  Sex: Female
  Weight: 59.9 kg

DRUGS (5)
  1. CELEBREX [Suspect]
     Indication: ARTHRITIS
     Dates: start: 20020101
  2. IBUPROFEN TABLETS [Concomitant]
  3. ACETYLSALICYLIC ACID SRT [Concomitant]
  4. PARACETAMOL [Concomitant]
  5. VIOXX [Concomitant]

REACTIONS (1)
  - CARDIAC FAILURE CONGESTIVE [None]
